FAERS Safety Report 24856642 (Version 1)
Quarter: 2025Q1

REPORT INFORMATION
  Report Type: Spontaneous
  Country: BR (occurrence: BR)
  Receive Date: 20250117
  Receipt Date: 20250117
  Transmission Date: 20250409
  Serious: Yes (Hospitalization)
  Sender: ELI LILLY AND COMPANY
  Company Number: BR-ELI_LILLY_AND_COMPANY-BR202501005689

PATIENT
  Sex: Female

DRUGS (1)
  1. BASAGLAR [Suspect]
     Active Substance: INSULIN GLARGINE
     Indication: Diabetes mellitus
     Route: 065
     Dates: start: 2015

REACTIONS (12)
  - Nephrolithiasis [Unknown]
  - Cholelithiasis [Unknown]
  - Syncope [Unknown]
  - Feeling cold [Unknown]
  - Hypoglycaemia [Unknown]
  - Product storage error [Unknown]
  - Injection site injury [Unknown]
  - Injection site pain [Unknown]
  - Injection site bruising [Unknown]
  - Pain [Unknown]
  - Pain in extremity [Unknown]
  - Gait disturbance [Unknown]
